FAERS Safety Report 25777802 (Version 1)
Quarter: 2025Q3

REPORT INFORMATION
  Report Type: Spontaneous
  Country: US (occurrence: US)
  Receive Date: 20250909
  Receipt Date: 20250909
  Transmission Date: 20251021
  Serious: No
  Sender: MAYNE
  Company Number: US-MAYNE PHARMA-2024MYN000440

PATIENT
  Sex: Female

DRUGS (1)
  1. ANNOVERA [Suspect]
     Active Substance: ETHINYL ESTRADIOL\SEGESTERONE ACETATE
     Indication: Product used for unknown indication
     Route: 065
     Dates: start: 20240830

REACTIONS (3)
  - Feeling of body temperature change [Unknown]
  - Chills [Unknown]
  - Night sweats [Unknown]

NARRATIVE: CASE EVENT DATE: 20240830
